FAERS Safety Report 9034620 (Version 1)
Quarter: 2013Q1

REPORT INFORMATION
  Report Type: Spontaneous
  Country: GB (occurrence: None)
  Receive Date: 20130118
  Receipt Date: 20130118
  Transmission Date: 20140127
  Serious: Yes (Other)
  Sender: FDA-Public Use
  Company Number: AUR-APL-2013-00493

PATIENT
  Sex: Male

DRUGS (6)
  1. CITALOPRAM (CITALOPRAM) [Suspect]
     Indication: DEPRESSION
     Route: 048
     Dates: start: 20120613, end: 20120627
  2. DABIGATRAN ETEXILA TE(DABIGATRAN ETEXILATE) [Concomitant]
  3. LOSARTAN (LOSARTAN) [Concomitant]
  4. OMEPRAZOLE (OMEPRAZOLE) [Concomitant]
  5. RAMIPRIL (RAMIPRIL) [Concomitant]
  6. TAMSULOSIN (TAMSULOSIN) [Concomitant]

REACTIONS (2)
  - Diplopia [None]
  - Impaired driving ability [None]
